FAERS Safety Report 22541184 (Version 1)
Quarter: 2023Q2

REPORT INFORMATION
  Report Type: Report from Study
  Country: KR (occurrence: KR)
  Receive Date: 20230609
  Receipt Date: 20230609
  Transmission Date: 20230721
  Serious: Yes (Hospitalization)
  Sender: FDA-Public Use
  Company Number: KR-SERVIER-S23005939

PATIENT

DRUGS (37)
  1. PEGASPARGASE [Suspect]
     Active Substance: PEGASPARGASE
     Indication: Acute lymphocytic leukaemia
     Dosage: 4400 [IU]
     Route: 030
     Dates: start: 20221118
  2. PEGASPARGASE [Suspect]
     Active Substance: PEGASPARGASE
     Dosage: 3525 [IU]
     Route: 030
     Dates: start: 20230428
  3. DEXAMETHASONE [Concomitant]
     Active Substance: DEXAMETHASONE
     Indication: Acute lymphocytic leukaemia
     Dosage: 5.75 MG, TID
     Route: 048
     Dates: start: 20221116, end: 20221122
  4. DEXAMETHASONE [Concomitant]
     Active Substance: DEXAMETHASONE
     Dosage: 5.75 MG, TID
     Route: 048
     Dates: start: 20221130, end: 20221206
  5. CYTARABINE [Concomitant]
     Active Substance: CYTARABINE
     Indication: Acute lymphocytic leukaemia
     Dosage: 30 MG
     Route: 037
     Dates: start: 20221116
  6. CYTARABINE [Concomitant]
     Active Substance: CYTARABINE
     Dosage: 30 MG
     Route: 037
     Dates: start: 20221216
  7. CYTARABINE [Concomitant]
     Active Substance: CYTARABINE
     Dosage: 130 MG, QD
     Route: 058
     Dates: start: 20221216, end: 20221217
  8. CYTARABINE [Concomitant]
     Active Substance: CYTARABINE
     Dosage: 130 MG, QD
     Route: 058
     Dates: start: 20221219, end: 20221220
  9. CYTARABINE [Concomitant]
     Active Substance: CYTARABINE
     Dosage: 130 MG, QD
     Route: 058
     Dates: start: 20221223, end: 20221224
  10. CYTARABINE [Concomitant]
     Active Substance: CYTARABINE
     Dosage: 130 MG, QD
     Route: 058
     Dates: start: 20221227
  11. DOXORUBICIN [Concomitant]
     Active Substance: DOXORUBICIN
     Indication: Acute lymphocytic leukaemia
     Dosage: 44 MG, 1X/WEEK
     Route: 042
     Dates: start: 20221116, end: 20221130
  12. HYDROCORTISONE SODIUM SUCCINATE [Concomitant]
     Active Substance: HYDROCORTISONE SODIUM SUCCINATE
     Indication: Acute lymphocytic leukaemia
     Dosage: 15 MG, QD
     Route: 037
     Dates: start: 20221116
  13. HYDROCORTISONE SODIUM SUCCINATE [Concomitant]
     Active Substance: HYDROCORTISONE SODIUM SUCCINATE
     Dosage: 30 MG, QD
     Route: 037
     Dates: start: 20221208
  14. HYDROCORTISONE SODIUM SUCCINATE [Concomitant]
     Active Substance: HYDROCORTISONE SODIUM SUCCINATE
     Dosage: 15 MG, QD
     Route: 037
     Dates: start: 20221216
  15. VINCRAN [Concomitant]
     Indication: Acute lymphocytic leukaemia
     Dosage: 2 MG, 1X/WEEK
     Route: 042
     Dates: start: 20221116, end: 20221130
  16. METHOTREXATE [Concomitant]
     Active Substance: METHOTREXATE
     Indication: Acute lymphocytic leukaemia
     Dosage: 15 MG, QD
     Route: 037
     Dates: start: 20221116
  17. METHOTREXATE [Concomitant]
     Active Substance: METHOTREXATE
     Dosage: 15 MG, QD
     Route: 037
     Dates: start: 20221216
  18. PURINETONE [Concomitant]
     Indication: Acute lymphocytic leukaemia
     Dosage: 37.5 MG, QD
     Route: 048
     Dates: start: 20221216
  19. CYCLOPHOSPHAMIDE [Concomitant]
     Active Substance: CYCLOPHOSPHAMIDE
     Indication: Acute lymphocytic leukaemia
     Dosage: 1750 MG, QD
     Route: 042
     Dates: start: 20221216
  20. LYRICA [Concomitant]
     Active Substance: PREGABALIN
     Indication: Hypoaesthesia
     Dosage: 150 MG, BID
     Route: 048
     Dates: start: 20220722
  21. SULFAMETHOXAZOLE\TRIMETHOPRIM [Concomitant]
     Active Substance: SULFAMETHOXAZOLE\TRIMETHOPRIM
     Indication: Pneumocystis jirovecii pneumonia
     Dosage: 1 DF, TWICE A WEEK, BID
     Route: 048
     Dates: start: 20220521
  22. SULFAMETHOXAZOLE\TRIMETHOPRIM [Concomitant]
     Active Substance: SULFAMETHOXAZOLE\TRIMETHOPRIM
     Indication: Prophylaxis
  23. ALOXI [Concomitant]
     Active Substance: PALONOSETRON HYDROCHLORIDE
     Indication: Prophylaxis
     Dosage: 0.25 MG, 1X/WEEK
     Route: 042
     Dates: start: 20221116
  24. ALOXI [Concomitant]
     Active Substance: PALONOSETRON HYDROCHLORIDE
     Indication: Nausea
     Dosage: 0.25 MG, 1X/WEEK
     Route: 042
     Dates: start: 20221216, end: 20221216
  25. Mago [Concomitant]
     Indication: Prophylaxis
     Dosage: 500 MG, QD
     Route: 048
     Dates: start: 20221206
  26. Mago [Concomitant]
     Indication: Constipation
  27. FLUCONAZOLE DAE WOO [Concomitant]
     Indication: Prophylaxis
     Dosage: 300 MG, QD
     Route: 048
     Dates: start: 20220519
  28. FLUCONAZOLE DAE WOO [Concomitant]
     Indication: Pneumocystis jirovecii pneumonia
  29. PLUNAZOLE [Concomitant]
     Indication: Prophylaxis
     Dosage: 50 MG, QD
     Route: 048
     Dates: start: 20220519
  30. PLUNAZOLE [Concomitant]
     Indication: Pneumocystis jirovecii pneumonia
  31. Ondantor [Concomitant]
     Indication: Prophylaxis of nausea and vomiting
     Dosage: 8 MG, PRN
     Route: 042
     Dates: start: 20220527
  32. NYSTATIN [Concomitant]
     Active Substance: NYSTATIN
     Indication: Antifungal prophylaxis
     Dosage: 4 ML, QID
     Dates: start: 20220606
  33. Hexamedin [Concomitant]
     Indication: Prophylaxis
     Dosage: 15 ML, PRN
     Dates: start: 20220512
  34. Hexamedin [Concomitant]
     Indication: Oral infection
  35. GYNOBETADINE [Concomitant]
     Indication: Prophylaxis
     Dosage: 5 ML, PRN
     Route: 067
     Dates: start: 20220512
  36. GYNOBETADINE [Concomitant]
     Indication: Infection
  37. DEXTROSE AND SODIUM CHLORIDE [Concomitant]
     Active Substance: DEXTROSE MONOHYDRATE\SODIUM CHLORIDE
     Indication: Prophylaxis
     Dosage: 40 CC/HR PRN
     Route: 042
     Dates: start: 20220621

REACTIONS (1)
  - Vomiting [Recovered/Resolved]

NARRATIVE: CASE EVENT DATE: 20230507
